FAERS Safety Report 10872474 (Version 1)
Quarter: 2015Q1

REPORT INFORMATION
  Report Type: Spontaneous
  Country: US (occurrence: US)
  Receive Date: 20150227
  Receipt Date: 20150227
  Transmission Date: 20150721
  Serious: No
  Sender: FDA-Public Use
  Company Number: US-ASTRAZENECA-2015SE16672

PATIENT
  Age: 21727 Day
  Sex: Female

DRUGS (1)
  1. BYETTA [Suspect]
     Active Substance: EXENATIDE
     Indication: ILL-DEFINED DISORDER
     Dosage: 250 MCG / 2.4 ML PEN, TWO TIMES A DAY
     Route: 058

REACTIONS (2)
  - Hunger [Unknown]
  - Underdose [Recovered/Resolved]

NARRATIVE: CASE EVENT DATE: 20150203
